FAERS Safety Report 18971155 (Version 1)
Quarter: 2021Q1

REPORT INFORMATION
  Report Type: Report from Study
  Country: IT (occurrence: IT)
  Receive Date: 20210305
  Receipt Date: 20210305
  Transmission Date: 20210420
  Serious: Yes (Hospitalization)
  Sender: FDA-Public Use
  Company Number: IT-ACCORD-218815

PATIENT
  Age: 91 Year
  Sex: Female

DRUGS (9)
  1. BLOPRESS [Concomitant]
     Active Substance: CANDESARTAN CILEXETIL
  2. ENDOXAN BAXTER [Concomitant]
     Active Substance: CYCLOPHOSPHAMIDE
  3. QUETIAPINE. [Suspect]
     Active Substance: QUETIAPINE
     Dates: start: 20201231, end: 20201231
  4. TALOFEN [Suspect]
     Active Substance: PROMAZINE HYDROCHLORIDE
     Dosage: STRENGTH:4 G / 100 ML
     Dates: start: 20201231, end: 20201231
  5. PAROXETINE. [Concomitant]
     Active Substance: PAROXETINE
  6. ESOMEPRAZOLE. [Concomitant]
     Active Substance: ESOMEPRAZOLE MAGNESIUM
  7. ESAPENT [Concomitant]
  8. LEXOTAN [Suspect]
     Active Substance: BROMAZEPAM
     Dosage: STRENGTH:2.5 MG / ML
     Dates: start: 20201231, end: 20201231
  9. NIFEDIPINE. [Concomitant]
     Active Substance: NIFEDIPINE
     Dosage: STRENGTH:30 MG

REACTIONS (2)
  - Drug abuse [Unknown]
  - Sopor [Recovering/Resolving]

NARRATIVE: CASE EVENT DATE: 20201231
